FAERS Safety Report 8837037 (Version 1)
Quarter: 2012Q4

REPORT INFORMATION
  Report Type: 
  Country: US (occurrence: US)
  Receive Date: 20121011
  Receipt Date: 20121011
  Transmission Date: 20130627
  Serious: Yes (Other)
  Sender: FDA-Public Use
  Company Number: CHPA2012US021051

PATIENT
  Age: 61 Year
  Sex: Female

DRUGS (2)
  1. EXCEDRIN EXTRA STRENGTH [Suspect]
     Indication: MENOPAUSE
     Dosage: 1-2 DF, PRN
     Route: 048
  2. EPIPEN [Suspect]
     Indication: URTICARIA
     Dosage: Unk, Unk

REACTIONS (14)
  - Anaphylactic reaction [Recovered/Resolved]
  - Urticaria [Recovered/Resolved]
  - Nasopharyngitis [Not Recovered/Not Resolved]
  - Oropharyngeal pain [Not Recovered/Not Resolved]
  - Sinusitis [Not Recovered/Not Resolved]
  - Ear pain [Not Recovered/Not Resolved]
  - Pain [Unknown]
  - Chills [Unknown]
  - Viral infection [Not Recovered/Not Resolved]
  - Premature menopause [Unknown]
  - Hot flush [Unknown]
  - Headache [Unknown]
  - Off label use [Unknown]
  - Underdose [Unknown]
